FAERS Safety Report 6396039-X (Version None)
Quarter: 2009Q4

REPORT INFORMATION
  Report Type: 
  Country: None (occurrence: None)
  Receive Date: 20091007
  Receipt Date: 20090929
  Transmission Date: 20100525
  Serious: Yes (Death, Other)
  Sender: FDA-Public Use
  Company Number: SPV1-2009-01844

PATIENT
  Age: 16 Year
  Sex: Female
  Weight: 61.7 kg

DRUGS (3)
  1. ADDERALL XR 10 [Suspect]
     Indication: ATTENTION DEFICIT/HYPERACTIVITY DISORDER
     Dosage: 30 MG, 1X/DAY:QD,
     Dates: start: 20070703, end: 20090621
  2. GEODON /01487002/ (ZIPRASIDONE HYDROCHLORIDE) [Concomitant]
  3. LEVOTHYROXINE SODIUM [Concomitant]

REACTIONS (2)
  - CARDIOMYOPATHY [None]
  - HEPATIC STEATOSIS [None]
